FAERS Safety Report 8249445-2 (Version None)
Quarter: 2012Q2

REPORT INFORMATION
  Report Type: 
  Country: None (occurrence: None)
  Receive Date: 20120402
  Receipt Date: 20120327
  Transmission Date: 20120825
  Serious: Yes (Death, Life-Threatening, Hospitalization)
  Sender: FDA-Public Use
  Company Number: GB-ELI_LILLY_AND_COMPANY-GB201112006306

PATIENT
  Sex: Female
  Weight: 83 kg

DRUGS (7)
  1. DEXAMETHASONE [Concomitant]
     Indication: PROPHYLAXIS
     Dosage: 8 MG, QD
     Route: 048
     Dates: start: 20111001
  2. PEMETREXED [Suspect]
     Indication: NON-SMALL CELL LUNG CANCER
     Dosage: 500 MG/M2, UNK
     Route: 042
     Dates: start: 20111104, end: 20111125
  3. FOLIC ACID [Concomitant]
     Indication: PROPHYLAXIS
     Dosage: 400 UG, QD
     Route: 048
     Dates: start: 20111013
  4. TAXOL [Suspect]
     Indication: NON-SMALL CELL LUNG CANCER
     Dosage: 175 MG/M2, UNK
     Route: 042
     Dates: start: 20111104, end: 20111125
  5. TINZAPARIN [Concomitant]
     Indication: DEEP VEIN THROMBOSIS
     Dosage: UNK, QD
     Route: 048
     Dates: start: 20111001
  6. TEMAZEPAM [Concomitant]
     Indication: INSOMNIA
     Dosage: 10 MG, QD
     Route: 048
     Dates: start: 20111109
  7. VITAMIN B-12 [Concomitant]
     Indication: PROPHYLAXIS
     Dosage: 1 MG, QD
     Route: 030
     Dates: start: 20111003

REACTIONS (2)
  - PNEUMONITIS [None]
  - ACUTE RESPIRATORY DISTRESS SYNDROME [None]
